FAERS Safety Report 13600525 (Version 1)
Quarter: 2017Q2

REPORT INFORMATION
  Report Type: Spontaneous
  Country: US (occurrence: US)
  Receive Date: 20170601
  Receipt Date: 20170601
  Transmission Date: 20170830
  Serious: No
  Sender: FDA-Public Use
  Company Number: US-STRIDES ARCOLAB LIMITED-2016SP019721

PATIENT

DRUGS (3)
  1. DIDANOSINE. [Suspect]
     Active Substance: DIDANOSINE
     Indication: PROPHYLAXIS AGAINST HIV INFECTION
     Dosage: (400 MILLIGRAMS, 250 MILLIGRAMS IF BODY WEIGHT ,60 KILOGRAMS), ONCE DAILY
  2. NEVIRAPINE. [Suspect]
     Active Substance: NEVIRAPINE
     Indication: PROPHYLAXIS AGAINST HIV INFECTION
     Dosage: 200 MG, SINGLE DOSE
     Route: 048
  3. ZIDOVUDINE. [Suspect]
     Active Substance: ZIDOVUDINE
     Indication: PROPHYLAXIS AGAINST HIV INFECTION
     Dosage: 300 MG, EVERY 3 HRS

REACTIONS (1)
  - Exposure during pregnancy [Unknown]
